FAERS Safety Report 16958426 (Version 2)
Quarter: 2022Q1

REPORT INFORMATION
  Report Type: Report from Study
  Country: CA (occurrence: CA)
  Receive Date: 20191024
  Receipt Date: 20220323
  Transmission Date: 20220423
  Serious: Yes (Life-Threatening, Other)
  Sender: FDA-Public Use
  Company Number: CA-NOVARTISPH-PHHY2015CA071931

PATIENT
  Age: 29 Year
  Sex: Female

DRUGS (3)
  1. GILENYA [Suspect]
     Active Substance: FINGOLIMOD HYDROCHLORIDE
     Indication: Relapsing-remitting multiple sclerosis
     Dosage: UNK
     Route: 048
     Dates: start: 20150611, end: 20180808
  2. PLEGRIDY [Suspect]
     Active Substance: PEGINTERFERON BETA-1A
     Indication: Product used for unknown indication
     Dosage: UNK
     Route: 065
  3. PLEGRIDY [Suspect]
     Active Substance: PEGINTERFERON BETA-1A
     Dosage: UNK
     Route: 065
     Dates: start: 20191020

REACTIONS (9)
  - Suicidal ideation [Unknown]
  - Depression [Unknown]
  - Crying [Unknown]
  - Multiple sclerosis relapse [Unknown]
  - Dry mouth [Unknown]
  - Visual impairment [Recovered/Resolved]
  - Fatigue [Unknown]
  - Headache [Unknown]
  - Drug ineffective [Unknown]

NARRATIVE: CASE EVENT DATE: 20150611
